FAERS Safety Report 10588350 (Version 2)
Quarter: 2017Q1

REPORT INFORMATION
  Report Type: Spontaneous
  Country: US (occurrence: US)
  Receive Date: 20141117
  Receipt Date: 20170203
  Transmission Date: 20170428
  Serious: Yes (Hospitalization, Other)
  Sender: FDA-Public Use
  Company Number: US-BAYER-2014-169633

PATIENT
  Age: 71 Year
  Sex: Female

DRUGS (13)
  1. ZOCOR [Concomitant]
     Active Substance: SIMVASTATIN
  2. HEPARIN [Interacting]
     Active Substance: HEPARIN SODIUM
     Indication: CORONARY ARTERY DISEASE
  3. INTEGRILIN [Interacting]
     Active Substance: EPTIFIBATIDE
     Indication: CORONARY ARTERY DISEASE
  4. ACETYLSALICYLIC ACID({=100 MG) [Interacting]
     Active Substance: ASPIRIN
     Indication: CORONARY ARTERY DISEASE
  5. CLOPIDOGREL [Interacting]
     Active Substance: CLOPIDOGREL BISULFATE
     Indication: ACUTE MYOCARDIAL INFARCTION
     Dosage: LOADING DOSE
  6. METOPROLOL. [Concomitant]
     Active Substance: METOPROLOL
  7. RANOLAZINE [Concomitant]
     Active Substance: RANOLAZINE
  8. ACETYLSALICYLIC ACID({=100 MG) [Suspect]
     Active Substance: ASPIRIN
     Indication: MYOCARDIAL INFARCTION
     Dosage: FULL DOSE
     Route: 048
  9. ACETYLSALICYLIC ACID({=100 MG) [Interacting]
     Active Substance: ASPIRIN
     Indication: ACUTE MYOCARDIAL INFARCTION
  10. HEPARIN [Interacting]
     Active Substance: HEPARIN SODIUM
     Indication: ACUTE MYOCARDIAL INFARCTION
     Route: 041
  11. INTEGRILIN [Interacting]
     Active Substance: EPTIFIBATIDE
     Indication: ACUTE MYOCARDIAL INFARCTION
     Route: 042
  12. ACETYLSALICYLIC ACID({=100 MG) [Interacting]
     Active Substance: ASPIRIN
     Indication: CORONARY ARTERIAL STENT INSERTION
     Dosage: 81 MG, QD
     Route: 048
  13. CLOPIDOGREL [Interacting]
     Active Substance: CLOPIDOGREL BISULFATE
     Indication: CORONARY ARTERY DISEASE
     Dosage: 75 MG, QD

REACTIONS (8)
  - Haemoglobin decreased [Recovered/Resolved]
  - Thrombocytopenia [None]
  - Coronary artery disease [None]
  - Abdominal wall haemorrhage [Recovered/Resolved]
  - Vascular stent thrombosis [None]
  - Labelled drug-drug interaction medication error [None]
  - Abdominal wall haematoma [Recovered/Resolved]
  - Drug administration error [Unknown]
